FAERS Safety Report 19012247 (Version 1)
Quarter: 2021Q1

REPORT INFORMATION
  Report Type: Spontaneous
  Country: US (occurrence: US)
  Receive Date: 20210316
  Receipt Date: 20210316
  Transmission Date: 20210420
  Serious: Yes (Disabling)
  Sender: FDA-Public Use
  Company Number: None

PATIENT
  Age: 46 Year
  Sex: Female
  Weight: 112.5 kg

DRUGS (6)
  1. PORCINE THYROID [Concomitant]
     Active Substance: THYROID, PORCINE
  2. VITAMIN D3 [Concomitant]
     Active Substance: CHOLECALCIFEROL
  3. LIOTHYRONINE [Concomitant]
     Active Substance: LIOTHYRONINE
  4. HYDROCODONE?ACETAMIN10?325MG [Suspect]
     Active Substance: ACETAMINOPHEN\HYDROCODONE BITARTRATE
     Indication: PAIN
     Dosage: ?          QUANTITY:1 TABLET(S);?
     Route: 048
     Dates: start: 20090301
  5. VITAMIN B12 [Concomitant]
     Active Substance: CYANOCOBALAMIN
  6. CPAP MACHINE [Concomitant]

REACTIONS (4)
  - Product quality issue [None]
  - Drug ineffective [None]
  - Somnolence [None]
  - Hunger [None]

NARRATIVE: CASE EVENT DATE: 20210314
